FAERS Safety Report 25934445 (Version 1)
Quarter: 2025Q4

REPORT INFORMATION
  Report Type: Report from Study
  Country: EG (occurrence: EG)
  Receive Date: 20251017
  Receipt Date: 20251017
  Transmission Date: 20260117
  Serious: Yes (Other)
  Sender: NOVARTIS
  Company Number: EG-002147023-NVSC2025EG159727

PATIENT
  Age: 59 Year
  Sex: Female
  Weight: 80 kg

DRUGS (2)
  1. MAYZENT [Suspect]
     Active Substance: SIPONIMOD
     Indication: Multiple sclerosis
     Dosage: 2 MG, QD
     Route: 048
     Dates: start: 202401
  2. SOLU-MEDROL [Suspect]
     Active Substance: METHYLPREDNISOLONE SODIUM SUCCINATE
     Indication: Multiple sclerosis
     Dosage: 1 G, (5 TIMES) ONE WEEK OR 10 DAYS AFTER START DATE (THE REPORTER STATED THAT PATIENT RECEIVED SOLU-
     Route: 065
     Dates: start: 202407

REACTIONS (7)
  - Diplopia [Not Recovered/Not Resolved]
  - Mobility decreased [Not Recovered/Not Resolved]
  - Multiple sclerosis relapse [Recovered/Resolved]
  - Photopsia [Unknown]
  - Muscle twitching [Unknown]
  - Balance disorder [Unknown]
  - Pain [Unknown]

NARRATIVE: CASE EVENT DATE: 20240701
